FAERS Safety Report 16181223 (Version 2)
Quarter: 2019Q3

REPORT INFORMATION
  Report Type: Spontaneous
  Country: US (occurrence: US)
  Receive Date: 20190410
  Receipt Date: 20190903
  Transmission Date: 20191004
  Serious: Yes (Hospitalization, Other)
  Sender: FDA-Public Use
  Company Number: US-AMAG PHARMACEUTICALS, INC.-AMAG201902069

PATIENT
  Age: 26 Year
  Sex: Female
  Weight: 74.46 kg

DRUGS (4)
  1. MAKENA [Suspect]
     Active Substance: HYDROXYPROGESTERONE CAPROATE
     Indication: PREMATURE DELIVERY
     Dosage: 250MG/ML, WEEKLY
     Route: 058
     Dates: start: 20190307, end: 20190321
  2. ACYCLOVIR. [Concomitant]
     Active Substance: ACYCLOVIR
     Indication: PRODUCT USED FOR UNKNOWN INDICATION
     Route: 048
  3. PRENATAL MULTIVITAMINS [Concomitant]
     Active Substance: VITAMINS
     Indication: PRODUCT USED FOR UNKNOWN INDICATION
     Route: 048
  4. ACYCLOVIR. [Concomitant]
     Active Substance: ACYCLOVIR
     Route: 048

REACTIONS (3)
  - Breech presentation [Recovered/Resolved]
  - Premature delivery [Recovered/Resolved]
  - Preterm premature rupture of membranes [Recovered/Resolved]

NARRATIVE: CASE EVENT DATE: 20190327
